FAERS Safety Report 4462538-0 (Version None)
Quarter: 2004Q3

REPORT INFORMATION
  Report Type: 
  Country: None (occurrence: None)
  Receive Date: 20040924
  Receipt Date: 20040914
  Transmission Date: 20050211
  Serious: Yes (Other)
  Sender: FDA-Public Use
  Company Number: K200401326

PATIENT
  Age: 80 Year
  Sex: Male

DRUGS (5)
  1. ALTACE [Suspect]
     Indication: PROPHYLAXIS
     Dates: start: 20020101, end: 20020804
  2. MICARDIS [Suspect]
     Indication: PROPHYLAXIS
     Dates: start: 20020101, end: 20040804
  3. ASPIRIN [Concomitant]
  4. ISMO (ISOSORBIDE MONONITRATE) ALTERNATIVE FORM [Concomitant]
  5. FUROSEMIDE [Concomitant]

REACTIONS (6)
  - ASTHENIA [None]
  - DISCOMFORT [None]
  - DIZZINESS [None]
  - FATIGUE [None]
  - FEAR [None]
  - HEADACHE [None]
